FAERS Safety Report 25919994 (Version 1)
Quarter: 2025Q4

REPORT INFORMATION
  Report Type: Spontaneous
  Country: US (occurrence: None)
  Receive Date: 20251014
  Receipt Date: 20251014
  Transmission Date: 20260117
  Serious: Yes (Hospitalization)
  Sender: FDA-CTU
  Company Number: None

PATIENT
  Age: 41 Year
  Sex: Female

DRUGS (4)
  1. TACROLIMUS [Suspect]
     Active Substance: TACROLIMUS
     Indication: Lung transplant
     Dosage: 2 MG TWICE A DAY ORAL
     Route: 048
     Dates: start: 20200928
  2. VORICONAZOLE [Concomitant]
     Active Substance: VORICONAZOLE
  3. VALGANCICLOVIR [Concomitant]
     Active Substance: VALGANCICLOVIR
  4. TACROLIMUS [Suspect]
     Active Substance: TACROLIMUS
     Indication: Lung transplant
     Dosage: 0.5 MG DAILY ORAL
     Dates: start: 20211214

REACTIONS (1)
  - Pneumonia [None]

NARRATIVE: CASE EVENT DATE: 20250929
